FAERS Safety Report 6489679-0 (Version None)
Quarter: 2009Q4

REPORT INFORMATION
  Report Type: 
  Country: None (occurrence: None)
  Receive Date: 20091207
  Receipt Date: 20091201
  Transmission Date: 20100525
  Serious: Yes (Death, Hospitalization)
  Sender: FDA-Public Use
  Company Number: CERZ-1001027

PATIENT
  Sex: Female
  Weight: 9 kg

DRUGS (1)
  1. CEREZYME [Suspect]
     Indication: GAUCHER'S DISEASE
     Dosage: 600 U, 2X/W, INTRAVENOUS
     Route: 042
     Dates: start: 20090924

REACTIONS (1)
  - INFECTION [None]
